FAERS Safety Report 17325735 (Version 2)
Quarter: 2022Q1

REPORT INFORMATION
  Report Type: Report from Study
  Country: CR (occurrence: CR)
  Receive Date: 20200127
  Receipt Date: 20220321
  Transmission Date: 20220424
  Serious: Yes (Other)
  Sender: FDA-Public Use
  Company Number: CR-NOVARTISPH-NVSC2020CR018503

PATIENT
  Age: 77 Year
  Sex: Male

DRUGS (2)
  1. DIOVAN [Suspect]
     Active Substance: VALSARTAN
     Indication: Product used for unknown indication
     Dosage: 80 MG (STARTED APPROXIMATELY 8 YEARS AGO AND STOPPED 6 MONTHS AGO)
     Route: 065
  2. DIOVAN [Suspect]
     Active Substance: VALSARTAN
     Dosage: 0.5 DOSAGE FORM (160 MG)
     Route: 065

REACTIONS (4)
  - Arrhythmia [Unknown]
  - Hypertension [Unknown]
  - Hypotension [Unknown]
  - Wrong technique in product usage process [Unknown]
